FAERS Safety Report 19456334 (Version 5)
Quarter: 2021Q3

REPORT INFORMATION
  Report Type: Spontaneous
  Country: JP (occurrence: JP)
  Receive Date: 20210624
  Receipt Date: 20210825
  Transmission Date: 20211014
  Serious: Yes (Hospitalization, Other)
  Sender: FDA-Public Use
  Company Number: JP-TAKEDA-2021TJP041745

PATIENT
  Age: 77 Year
  Sex: Male
  Weight: 70.2 kg

DRUGS (21)
  1. TAKECAB [Concomitant]
     Active Substance: VONOPRAZAN FUMARATE
     Indication: GASTROOESOPHAGEAL REFLUX DISEASE
     Dosage: 10 MILLIGRAM, QD
     Route: 048
  2. LIXIANA OD [Concomitant]
     Active Substance: EDOXABAN TOSYLATE
     Indication: PULMONARY EMBOLISM
     Dosage: 30 MILLIGRAM, QD
     Route: 048
  3. PREDNISOLONE. [Concomitant]
     Active Substance: PREDNISOLONE
     Dosage: 10 MILLIGRAM
     Route: 048
     Dates: start: 20210521, end: 20210527
  4. FERROUS CITRATE NA [Concomitant]
     Active Substance: SODIUM FERROUS CITRATE
     Indication: COLITIS ULCERATIVE
     Dosage: 50 MILLIGRAM, BID
     Route: 048
  5. LEVOCETIRIZINE DIHYDROCHLORIDE. [Suspect]
     Active Substance: LEVOCETIRIZINE DIHYDROCHLORIDE
     Indication: ATRIAL FIBRILLATION
     Dosage: 20 MILLIGRAM, BID
     Route: 048
     Dates: start: 20210602
  6. BENIDIPINE HYDROCHLORIDE [Concomitant]
     Active Substance: BENIDIPINE HYDROCHLORIDE
     Indication: HYPERTENSION
     Dosage: 2 MILLIGRAM, BID
     Route: 048
  7. PREDNISOLONE. [Concomitant]
     Active Substance: PREDNISOLONE
     Dosage: 20 MILLIGRAM
     Route: 048
     Dates: start: 20210507, end: 20210513
  8. COR TYZINE [Concomitant]
     Indication: RHINITIS
     Dosage: UNK UNK, QD
     Route: 045
  9. HYOSCINE BUTYLBROMIDE [Concomitant]
     Active Substance: BUTYLSCOPOLAMINE BROMIDE
     Indication: ABDOMINAL PAIN
     Dosage: 10 MILLIGRAM
     Route: 048
  10. LASIX [Suspect]
     Active Substance: FUROSEMIDE
     Dosage: 10 MILLIGRAM
     Route: 048
  11. LIALDA [Concomitant]
     Active Substance: MESALAMINE
     Indication: COLITIS ULCERATIVE
     Dosage: 4800 MILLIGRAM, QD
     Route: 048
     Dates: start: 201807
  12. ENTYVIO [Suspect]
     Active Substance: VEDOLIZUMAB
     Indication: COLITIS ULCERATIVE
     Dosage: 300 MILLIGRAM
     Route: 042
     Dates: start: 20210528
  13. PREDNISOLONE. [Concomitant]
     Active Substance: PREDNISOLONE
     Dosage: 15 MILLIGRAM
     Route: 048
     Dates: start: 20210514, end: 20210520
  14. LASIX [Suspect]
     Active Substance: FUROSEMIDE
     Indication: OEDEMA PERIPHERAL
     Dosage: 20 MILLIGRAM, QD
     Route: 048
     Dates: start: 20210514
  15. BISOPROLOL FUMARATE. [Suspect]
     Active Substance: BISOPROLOL FUMARATE
     Indication: ATRIAL FIBRILLATION
     Dosage: 2.5 MILLIGRAM, QD
     Route: 048
     Dates: start: 20210602
  16. FEBURIC [Concomitant]
     Active Substance: FEBUXOSTAT
     Indication: HYPERURICAEMIA
     Dosage: 10 MILLIGRAM, QD
     Route: 048
  17. ATORVASTATIN [Concomitant]
     Active Substance: ATORVASTATIN
     Indication: DYSLIPIDAEMIA
     Dosage: 5 MILLIGRAM, QD
     Route: 048
  18. PREDNISOLONE. [Concomitant]
     Active Substance: PREDNISOLONE
     Dosage: 2.5 MILLIGRAM
     Route: 048
     Dates: start: 20210611
  19. VESICARE [Concomitant]
     Active Substance: SOLIFENACIN SUCCINATE
     Indication: HYPERTONIC BLADDER
     Dosage: 5 MILLIGRAM, QD
     Route: 048
  20. PREDNISOLONE. [Concomitant]
     Active Substance: PREDNISOLONE
     Dosage: 5 MILLIGRAM
     Route: 048
     Dates: start: 20210528, end: 20210610
  21. PREDNISOLONE. [Concomitant]
     Active Substance: PREDNISOLONE
     Indication: COLITIS ULCERATIVE
     Dosage: 25 MILLIGRAM, QD
     Route: 048
     Dates: start: 20210430, end: 20210506

REACTIONS (3)
  - Atrial fibrillation [Recovering/Resolving]
  - Renal disorder [Not Recovered/Not Resolved]
  - Hypertrophic cardiomyopathy [Not Recovered/Not Resolved]

NARRATIVE: CASE EVENT DATE: 20210602
